FAERS Safety Report 7807147-8 (Version None)
Quarter: 2011Q4

REPORT INFORMATION
  Report Type: 
  Country: None (occurrence: None)
  Receive Date: 20111011
  Receipt Date: 20110930
  Transmission Date: 20120403
  Serious: Yes (Congenital Anomaly)
  Sender: FDA-Public Use
  Company Number: PHHY2011JP77952

PATIENT
  Sex: Male
  Weight: 3 kg

DRUGS (3)
  1. CETROTIDE [Concomitant]
     Dosage: MATERNAL DOSE: 0.5 MG
     Route: 064
  2. FEMARA [Suspect]
     Dosage: MATERNAL DOSE: 5 MG DAILY
     Route: 064
  3. GONADOTROPINS [Concomitant]
     Dosage: MATERNAL DOSE: 150 IU
     Route: 064

REACTIONS (2)
  - TRISOMY 21 [None]
  - MATERNAL EXPOSURE DURING PREGNANCY [None]
